FAERS Safety Report 7684275-1 (Version None)
Quarter: 2011Q3

REPORT INFORMATION
  Report Type: 
  Country: None (occurrence: None)
  Receive Date: 20110815
  Receipt Date: 20110801
  Transmission Date: 20111222
  Serious: No
  Sender: FDA-Public Use
  Company Number: US-B.I. PHARMACEUTICALS,INC./RIDGEFIELD-2011-BP-18888BP

PATIENT
  Sex: Male

DRUGS (8)
  1. CRESTOR [Concomitant]
     Indication: BLOOD CHOLESTEROL INCREASED
  2. DIGOXIN [Concomitant]
     Indication: ATRIAL FIBRILLATION
     Dosage: 0.125 MG
  3. LUMIGAN [Concomitant]
     Indication: GLAUCOMA
  4. PRADAXA [Suspect]
     Indication: ATRIAL FIBRILLATION
     Dosage: 300 MG
     Route: 048
     Dates: start: 20110601
  5. TOPROL-XL [Concomitant]
     Indication: CARDIAC DISORDER
     Dosage: 50 MG
  6. COMBIGAN [Concomitant]
     Indication: GLAUCOMA
  7. AZOPT [Concomitant]
     Indication: GLAUCOMA
  8. ASPIRIN [Concomitant]
     Indication: PROPHYLAXIS
     Dosage: 81 MG

REACTIONS (1)
  - CONSTIPATION [None]
